FAERS Safety Report 9124479 (Version 2)
Quarter: 2013Q2

REPORT INFORMATION
  Report Type: Spontaneous
  Country: JP (occurrence: JP)
  Receive Date: 20130227
  Receipt Date: 20130519
  Transmission Date: 20140414
  Serious: Yes (Death)
  Sender: FDA-Public Use
  Company Number: JP-ROCHE-1195544

PATIENT
  Age: 50 Year
  Sex: Female

DRUGS (1)
  1. AVASTIN [Suspect]
     Indication: BREAST CANCER
     Route: 041

REACTIONS (1)
  - Tumour lysis syndrome [Fatal]
